FAERS Safety Report 8836194 (Version 25)
Quarter: 2017Q1

REPORT INFORMATION
  Report Type: Report from Study
  Country: CA (occurrence: CA)
  Receive Date: 20121011
  Receipt Date: 20170106
  Transmission Date: 20170429
  Serious: Yes (Other)
  Sender: FDA-Public Use
  Company Number: CA-ROCHE-1130266

PATIENT
  Age: 50 Year
  Sex: Female
  Weight: 120 kg

DRUGS (10)
  1. VITAMIN C [Concomitant]
     Active Substance: ASCORBIC ACID
  2. AMITRIPTYLINE [Concomitant]
     Active Substance: AMITRIPTYLINE
  3. PREDNISONE. [Concomitant]
     Active Substance: PREDNISONE
     Route: 065
  4. RITUXAN [Suspect]
     Active Substance: RITUXIMAB
     Indication: RHEUMATOID ARTHRITIS
     Route: 042
     Dates: start: 20091222, end: 20100119
  5. HYDROXYCHLOROQUINE [Concomitant]
     Active Substance: HYDROXYCHLOROQUINE
  6. OMEGA 3 [Concomitant]
     Active Substance: OMEGA-3 FATTY ACIDS
  7. ACTEMRA [Suspect]
     Active Substance: TOCILIZUMAB
     Indication: RHEUMATOID ARTHRITIS
     Dosage: DATE OF LAST DOSE PRIOR TO SAE: 20/JUN/2012, LAST DOSE RECEIVED ON 15/JAN/2013
     Route: 042
     Dates: start: 20110407
  8. DICLOFENAC [Concomitant]
     Active Substance: DICLOFENAC
  9. MEDROL [Concomitant]
     Active Substance: METHYLPREDNISOLONE
     Route: 030
     Dates: start: 20120914, end: 20121214
  10. METHOTREXATE. [Concomitant]
     Active Substance: METHOTREXATE
     Route: 065
     Dates: start: 201306

REACTIONS (22)
  - Increased tendency to bruise [Not Recovered/Not Resolved]
  - Blood pressure systolic abnormal [Unknown]
  - Infusion related reaction [Recovered/Resolved]
  - Heart rate increased [Recovered/Resolved]
  - Lacrimation increased [Recovered/Resolved]
  - Pain [Not Recovered/Not Resolved]
  - Joint swelling [Not Recovered/Not Resolved]
  - Blood pressure increased [Unknown]
  - Drug ineffective [Unknown]
  - Weight increased [Not Recovered/Not Resolved]
  - Rheumatoid arthritis [Not Recovered/Not Resolved]
  - Blood pressure fluctuation [Unknown]
  - Erythema [Unknown]
  - Urticaria [Recovered/Resolved]
  - Throat irritation [Recovered/Resolved]
  - Infusion related reaction [Unknown]
  - Rheumatoid arthritis [Recovering/Resolving]
  - Ear infection [Recovering/Resolving]
  - Weight decreased [Not Recovered/Not Resolved]
  - Blood pressure increased [Unknown]
  - Pain [Unknown]
  - Heart rate increased [Unknown]

NARRATIVE: CASE EVENT DATE: 2012
